FAERS Safety Report 5364638-X (Version None)
Quarter: 2007Q2

REPORT INFORMATION
  Report Type: 
  Country: None (occurrence: None)
  Receive Date: 20070606
  Receipt Date: 20070405
  Transmission Date: 20071010
  Serious: Yes (Other)
  Sender: FDA-Public Use
  Company Number: PAR_1487_2007

PATIENT
  Sex: Female

DRUGS (2)
  1. CAPTOPRIL [Suspect]
  2. DILTIAZEM [Suspect]

REACTIONS (1)
  - MYOCARDIAL INFARCTION [None]
